APPROVED DRUG PRODUCT: ABACAVIR SULFATE
Active Ingredient: ABACAVIR SULFATE
Strength: EQ 20MG BASE/ML
Dosage Form/Route: SOLUTION;ORAL
Application: A201107 | Product #001 | TE Code: AA
Applicant: HETERO LABS LTD UNIT III
Approved: Sep 26, 2016 | RLD: No | RS: No | Type: RX